FAERS Safety Report 7603197-5 (Version None)
Quarter: 2011Q3

REPORT INFORMATION
  Report Type: 
  Country: None (occurrence: None)
  Receive Date: 20110712
  Receipt Date: 20110705
  Transmission Date: 20111222
  Serious: Yes (Hospitalization)
  Sender: FDA-Public Use
  Company Number: US-GENZYME-FABR-1002002

PATIENT
  Sex: Female
  Weight: 84.4 kg

DRUGS (2)
  1. FABRAZYME [Suspect]
     Indication: FABRY'S DISEASE
     Dosage: 0.54 MG/KG, Q2W
     Route: 042
     Dates: start: 20030101
  2. ACETAMINOPHEN [Concomitant]
     Indication: PREMEDICATION
     Dosage: 1000 MG, Q2W
     Route: 048

REACTIONS (3)
  - MOBILITY DECREASED [None]
  - APHASIA [None]
  - DYSPHAGIA [None]
